FAERS Safety Report 9016994 (Version 2)
Quarter: 2013Q1

REPORT INFORMATION
  Report Type: Spontaneous
  Country: SE (occurrence: SE)
  Receive Date: 20130117
  Receipt Date: 20130329
  Transmission Date: 20140127
  Serious: Yes (Hospitalization, Other)
  Sender: FDA-Public Use
  Company Number: SE-009507513-1301SWE006084

PATIENT
  Age: 66 Year
  Sex: Male

DRUGS (4)
  1. TRYPTIZOL [Suspect]
     Indication: NEURALGIA
     Dosage: 1-5 TABLETS DAILY
     Route: 048
     Dates: start: 201208, end: 201301
  2. TRADIL [Concomitant]
     Dosage: UNKNOWN
  3. SIMVASTATIN [Concomitant]
     Dosage: UNKNOWN
  4. TROMBYL [Concomitant]
     Dosage: UNKNOWN

REACTIONS (2)
  - Pulmonary embolism [Unknown]
  - Off label use [Unknown]
